FAERS Safety Report 6015775-8 (Version None)
Quarter: 2008Q4

REPORT INFORMATION
  Report Type: 
  Country: None (occurrence: None)
  Receive Date: 20081222
  Receipt Date: 20081215
  Transmission Date: 20090506
  Serious: Yes (Hospitalization, Other)
  Sender: FDA-Public Use
  Company Number: DE-ASTRAZENECA-2008PK02717

PATIENT
  Sex: Female
  Weight: 45 kg

DRUGS (7)
  1. CARBOSTESIN 0.25 % [Suspect]
     Dosage: NUMBER OF SINGLE DOSE DIFFERENT
     Route: 053
     Dates: start: 20080401, end: 20080409
  2. IBUPROFEN TABLETS [Suspect]
     Indication: PAIN
     Route: 048
     Dates: start: 20080326, end: 20080413
  3. LORMETAZEPAM [Concomitant]
     Route: 048
     Dates: start: 20080326, end: 20080407
  4. EMBOLEX [Concomitant]
     Indication: THROMBOSIS PROPHYLAXIS
     Route: 058
     Dates: start: 20080326, end: 20080410
  5. NOVALGIN [Concomitant]
     Route: 048
     Dates: start: 20080326, end: 20080409
  6. PANTOZOL [Concomitant]
     Route: 048
     Dates: start: 20080326, end: 20080413
  7. TRAMADOL HCL [Concomitant]
     Route: 048
     Dates: start: 20080409, end: 20080409

REACTIONS (1)
  - HEPATITIS ACUTE [None]
